FAERS Safety Report 24918496 (Version 1)
Quarter: 2025Q1

REPORT INFORMATION
  Report Type: Spontaneous
  Country: IT (occurrence: IT)
  Receive Date: 20250203
  Receipt Date: 20250203
  Transmission Date: 20250409
  Serious: Yes (Other)
  Sender: AMGEN
  Company Number: None

PATIENT
  Age: 53 Year
  Sex: Female
  Weight: 51 kg

DRUGS (1)
  1. EVENITY [Suspect]
     Active Substance: ROMOSOZUMAB-AQQG
     Indication: Product used for unknown indication
     Dosage: 105 MILLIGRAM, EV 2 WEEKS(QOW)
     Route: 058
     Dates: start: 202407, end: 202410

REACTIONS (2)
  - Depressed level of consciousness [Recovered/Resolved]
  - Tachycardia [Recovered/Resolved]

NARRATIVE: CASE EVENT DATE: 20240701
